FAERS Safety Report 7421951-X (Version None)
Quarter: 2011Q2

REPORT INFORMATION
  Report Type: 
  Country: None (occurrence: None)
  Receive Date: 20110418
  Receipt Date: 20110412
  Transmission Date: 20111010
  Serious: Yes (Other)
  Sender: FDA-Public Use
  Company Number: FR-ELI_LILLY_AND_COMPANY-FR201104003202

PATIENT
  Age: 55 Year
  Sex: Male
  Weight: 109 kg

DRUGS (7)
  1. BYETTA [Suspect]
     Dosage: 5 UG, BID
     Route: 058
     Dates: start: 20110127
  2. VOLTAREN [Concomitant]
     Dosage: UNK
  3. VICTOZA [Concomitant]
     Dosage: 6 DF, UNKNOWN
     Route: 058
     Dates: start: 20110104
  4. RIVOTRIL [Concomitant]
     Dosage: UNK
  5. VICTOZA [Concomitant]
     Dosage: UNK, UNKNOWN
     Route: 058
     Dates: end: 20110101
  6. DIAMICRON [Concomitant]
     Dosage: UNK
  7. OMEXEL [Concomitant]
     Dosage: UNK

REACTIONS (3)
  - MALAISE [None]
  - LOSS OF CONSCIOUSNESS [None]
  - DIZZINESS [None]
